FAERS Safety Report 5243665-7 (Version None)
Quarter: 2007Q1

REPORT INFORMATION
  Report Type: 
  Country: None (occurrence: None)
  Receive Date: 20070222
  Receipt Date: 20070214
  Transmission Date: 20070707
  Serious: Yes (Disabling)
  Sender: FDA-Public Use
  Company Number: JP-JNJFOC-20070203188

PATIENT
  Sex: Female
  Weight: 46.2 kg

DRUGS (8)
  1. LEVOFLOXACIN [Suspect]
     Indication: BRONCHITIS
     Route: 048
     Dates: start: 20070127, end: 20070202
  2. GLUCOBAY [Concomitant]
     Indication: DIABETES MELLITUS
     Route: 048
  3. AMLODIPINE [Concomitant]
     Indication: HYPERTENSION
     Route: 048
  4. MAGMITT [Concomitant]
     Indication: CONSTIPATION
     Route: 048
  5. PANTOSIN [Concomitant]
     Indication: CONSTIPATION
     Route: 048
  6. MYSLEE [Concomitant]
     Indication: INSOMNIA
     Route: 048
  7. ANTOBRON [Concomitant]
     Indication: BRONCHITIS
     Route: 048
     Dates: start: 20070127, end: 20070202
  8. LEBENIN [Concomitant]
     Indication: BRONCHITIS
     Route: 048
     Dates: start: 20070127, end: 20070202

REACTIONS (2)
  - CONVULSION [None]
  - HYPOGLYCAEMIC COMA [None]
